FAERS Safety Report 12408651 (Version 3)
Quarter: 2016Q3

REPORT INFORMATION
  Report Type: Report from Study
  Country: ES (occurrence: ES)
  Receive Date: 20160526
  Receipt Date: 20160815
  Transmission Date: 20161109
  Serious: Yes (Other)
  Sender: FDA-Public Use
  Company Number: ES-ROCHE-1652068

PATIENT
  Age: 62 Year
  Sex: Male
  Weight: 64 kg

DRUGS (2)
  1. ATEZOLIZUMAB [Suspect]
     Active Substance: ATEZOLIZUMAB
     Indication: NON-SMALL CELL LUNG CANCER
     Dosage: MOST RECENT DOSE AT 1200 MG TAKEN ON 19/SEP/2014
     Route: 042
     Dates: start: 20140625
  2. VALDOXAN [Concomitant]
     Active Substance: AGOMELATINE
     Indication: ANXIETY
     Route: 048
     Dates: start: 20140327

REACTIONS (1)
  - Tachycardia [Recovered/Resolved]

NARRATIVE: CASE EVENT DATE: 20140920
